FAERS Safety Report 16309799 (Version 1)
Quarter: 2019Q2

REPORT INFORMATION
  Report Type: Report from Study
  Country: US (occurrence: US)
  Receive Date: 20190514
  Receipt Date: 20190514
  Transmission Date: 20190711
  Serious: Yes (Disabling)
  Sender: FDA-Public Use
  Company Number: US-SA-2019SA129542

PATIENT
  Age: 65 Year
  Sex: Male

DRUGS (3)
  1. APIDRA [Concomitant]
     Active Substance: INSULIN GLULISINE
     Dosage: UNK
  2. INSULIN GLARGINE [Suspect]
     Active Substance: INSULIN GLARGINE
     Indication: TYPE 2 DIABETES MELLITUS
     Dosage: 30 U, QD
     Route: 058
  3. HUMALOG [Concomitant]
     Active Substance: INSULIN LISPRO
     Dosage: UNK

REACTIONS (2)
  - Disability [Unknown]
  - Ear discomfort [Unknown]
